FAERS Safety Report 6169331-1 (Version None)
Quarter: 2009Q2

REPORT INFORMATION
  Report Type: 
  Country: None (occurrence: None)
  Receive Date: 20090424
  Receipt Date: 20090415
  Transmission Date: 20091009
  Serious: Yes (Death, Life-Threatening, Hospitalization)
  Sender: FDA-Public Use
  Company Number: 2009BI007177

PATIENT
  Age: 60 Year
  Sex: Male

DRUGS (2)
  1. ZEVALIN [Suspect]
     Indication: LYMPHOMA
     Dosage: 1X; IV
     Route: 042
     Dates: start: 20090210, end: 20090217
  2. RITUXIMAB [Concomitant]

REACTIONS (10)
  - ANAEMIA [None]
  - BLOOD PRESSURE DECREASED [None]
  - BRAIN OEDEMA [None]
  - CAROTID ARTERY OCCLUSION [None]
  - CEREBRAL INFARCTION [None]
  - DISSEMINATED INTRAVASCULAR COAGULATION [None]
  - INTERSTITIAL LUNG DISEASE [None]
  - PLATELET COUNT DECREASED [None]
  - PUPILS UNEQUAL [None]
  - WHITE BLOOD CELL COUNT DECREASED [None]
